FAERS Safety Report 15300324 (Version 1)
Quarter: 2018Q3

REPORT INFORMATION
  Report Type: Spontaneous
  Country: US (occurrence: US)
  Receive Date: 20180821
  Receipt Date: 20180821
  Transmission Date: 20181010
  Serious: Yes (Other)
  Sender: FDA-Public Use
  Company Number: US-GLAXOSMITHKLINE-US2018GSK146321

PATIENT
  Sex: Female

DRUGS (1)
  1. ADVAIR HFA [Suspect]
     Active Substance: FLUTICASONE PROPIONATE\SALMETEROL XINAFOATE
     Indication: PRODUCT USED FOR UNKNOWN INDICATION

REACTIONS (14)
  - Surgery [Unknown]
  - Pneumothorax [Unknown]
  - Pulmonary mass [Recovered/Resolved]
  - Central venous catheterisation [Unknown]
  - Thrombosis [Unknown]
  - Peripheral artery occlusion [Unknown]
  - Intentional dose omission [Unknown]
  - Emphysema [Unknown]
  - Stent placement [Unknown]
  - Nerve injury [Unknown]
  - Fall [Unknown]
  - Peripheral arterial occlusive disease [Unknown]
  - Chronic obstructive pulmonary disease [Unknown]
  - Apparent death [Unknown]
